FAERS Safety Report 23130734 (Version 1)
Quarter: 2023Q4

REPORT INFORMATION
  Report Type: Spontaneous
  Country: US (occurrence: US)
  Receive Date: 20231031
  Receipt Date: 20231031
  Transmission Date: 20240110
  Serious: No
  Sender: FDA-Public Use
  Company Number: US-TARSUS PHARMACEUTICALS-TSP-US-2023-000016

PATIENT
  Age: 77 Year
  Sex: Female

DRUGS (1)
  1. XDEMVY [Suspect]
     Active Substance: LOTILANER
     Indication: Product used for unknown indication
     Dosage: 1 DROP, BID (IN BOTH EYES)
     Route: 047

REACTIONS (3)
  - Instillation site irritation [Unknown]
  - Dizziness [Unknown]
  - Brain fog [Unknown]
